FAERS Safety Report 6304153-X (Version None)
Quarter: 2009Q3

REPORT INFORMATION
  Report Type: 
  Country: None (occurrence: None)
  Receive Date: 20090811
  Receipt Date: 20090804
  Transmission Date: 20100115
  Serious: Yes (Hospitalization)
  Sender: FDA-Public Use
  Company Number: US-BIOGENIDEC-2009BI014297

PATIENT
  Age: 53 Year
  Sex: Female

DRUGS (13)
  1. TYSABRI [Suspect]
     Indication: MULTIPLE SCLEROSIS
     Route: 042
     Dates: start: 20071121
  2. KLONOPIN [Concomitant]
     Route: 048
  3. ASPIRIN [Concomitant]
  4. NOVALOG [Concomitant]
     Indication: TYPE 2 DIABETES MELLITUS
  5. HUMALOG [Concomitant]
     Indication: TYPE 2 DIABETES MELLITUS
  6. HUMALOG [Concomitant]
  7. VITAMIN D [Concomitant]
  8. VITAMIN B-12 [Concomitant]
  9. CALCIUM [Concomitant]
  10. DIGOXIN [Concomitant]
     Indication: CARDIAC FAILURE CONGESTIVE
  11. NITROFURANTOIN [Concomitant]
  12. DETROL LA [Concomitant]
     Indication: URINARY INCONTINENCE
  13. TRAZODONE HCL [Concomitant]

REACTIONS (9)
  - DIABETES MELLITUS INADEQUATE CONTROL [None]
  - FALL [None]
  - HEPATIC ENZYME INCREASED [None]
  - KLEBSIELLA INFECTION [None]
  - LOSS OF CONTROL OF LEGS [None]
  - MULTIPLE SCLEROSIS [None]
  - SYNCOPE [None]
  - URINARY TRACT INFECTION [None]
  - UROSEPSIS [None]
